FAERS Safety Report 6568383-4 (Version None)
Quarter: 2010Q1

REPORT INFORMATION
  Report Type: 
  Country: None (occurrence: None)
  Receive Date: 20100203
  Receipt Date: 20100126
  Transmission Date: 20100710
  Serious: Yes (Hospitalization)
  Sender: FDA-Public Use
  Company Number: JP-B.I. PHARMACEUTICALS,INC./RIDGEFIELD-2010-BP-00450NB

PATIENT
  Sex: Female
  Weight: 48.2 kg

DRUGS (6)
  1. MOBIC [Suspect]
     Indication: OSTEOARTHRITIS
     Dosage: 20 MG
     Route: 048
     Dates: start: 20021015, end: 20030218
  2. LOXONIN [Suspect]
     Indication: OSTEOARTHRITIS
     Dosage: 120 MG
     Route: 048
     Dates: start: 20090415, end: 20090620
  3. VOLTAREN [Suspect]
     Indication: OSTEOARTHRITIS
     Dosage: 50 MG
     Route: 048
     Dates: start: 20071226, end: 20090414
  4. MUCOSTA [Concomitant]
     Indication: PROPHYLAXIS AGAINST GASTROINTESTINAL ULCER
     Dosage: 200 MG
     Route: 048
     Dates: end: 20090620
  5. OMEPRAL [Concomitant]
     Indication: PROPHYLAXIS AGAINST GASTROINTESTINAL ULCER
     Dosage: 10 MG
     Route: 048
     Dates: end: 20090620
  6. PRORENAL [Concomitant]
     Indication: PAIN IN EXTREMITY
     Dosage: 15 MCG
     Route: 048

REACTIONS (1)
  - SMALL INTESTINE ULCER [None]
